FAERS Safety Report 13043072 (Version 1)
Quarter: 2016Q4

REPORT INFORMATION
  Report Type: Spontaneous
  Country: IT (occurrence: IT)
  Receive Date: 20161219
  Receipt Date: 20161219
  Transmission Date: 20170207
  Serious: Yes (Hospitalization)
  Sender: FDA-Public Use
  Company Number: IT-ASTRAZENECA-2016SF32344

PATIENT
  Age: 29573 Day
  Sex: Female

DRUGS (5)
  1. SELOKEN [Suspect]
     Active Substance: METOPROLOL
     Route: 048
     Dates: start: 20160520, end: 20161130
  2. DIUREMID (TORSEMIDE) [Suspect]
     Active Substance: TORSEMIDE
     Indication: HYPERTENSION
     Dosage: 1 DOSAGE FORM DAILY
     Route: 048
     Dates: start: 20091130, end: 20161130
  3. MADOPAR [Concomitant]
     Active Substance: BENSERAZIDE HYDROCHLORIDE\LEVODOPA
  4. QUETIAPINE. [Suspect]
     Active Substance: QUETIAPINE
     Route: 048
     Dates: start: 20160520, end: 20161130
  5. CARDIRENE [Concomitant]
     Active Substance: ASPIRIN DL-LYSINE

REACTIONS (4)
  - Hypotension [Recovered/Resolved]
  - Long QT syndrome [Recovered/Resolved]
  - Bradyarrhythmia [Recovered/Resolved]
  - Hypokalaemia [Recovered/Resolved]

NARRATIVE: CASE EVENT DATE: 20161130
